FAERS Safety Report 14512177 (Version 1)
Quarter: 2018Q1

REPORT INFORMATION
  Report Type: Spontaneous
  Country: US (occurrence: US)
  Receive Date: 20180209
  Receipt Date: 20180209
  Transmission Date: 20180509
  Serious: No
  Sender: FDA-Public Use
  Company Number: US-DSJP-DSU-2017-116096

PATIENT
  Age: 76 Year
  Sex: Female

DRUGS (2)
  1. EVOXAC AG [Suspect]
     Active Substance: CEVIMELINE HYDROCHLORIDE
     Indication: SJOGREN^S SYNDROME
     Dosage: 30 MG, QD
     Route: 048
     Dates: start: 201705, end: 201705
  2. XANAX [Concomitant]
     Active Substance: ALPRAZOLAM
     Indication: HYPERTENSION
     Dosage: 1 MG, TID
     Route: 048

REACTIONS (3)
  - Incorrect dose administered [Recovered/Resolved]
  - Drug ineffective [Unknown]
  - Dry mouth [Unknown]

NARRATIVE: CASE EVENT DATE: 201705
